FAERS Safety Report 5678162-8 (Version None)
Quarter: 2008Q1

REPORT INFORMATION
  Report Type: 
  Country: None (occurrence: None)
  Receive Date: 20080319
  Receipt Date: 20080305
  Transmission Date: 20080703
  Serious: Yes (Life-Threatening)
  Sender: FDA-Public Use
  Company Number: POMP-1000046

PATIENT
  Age: 6 Month
  Sex: Female
  Weight: 6.2 kg

DRUGS (6)
  1. MYOZYME [Suspect]
     Indication: GLYCOGEN STORAGE DISEASE TYPE II
     Dosage: 20 MG/KG, Q2W, INTRAVENOUS
     Route: 042
     Dates: start: 20070807
  2. MYOZYME [Suspect]
  3. MYOZYME [Suspect]
  4. LASIX [Concomitant]
  5. LEVOCARNIL (LEVOCARNITINE) [Concomitant]
  6. DEXTRIN (DEXTRIN) [Concomitant]

REACTIONS (11)
  - APNOEA [None]
  - CYANOSIS [None]
  - DYSPNOEA [None]
  - ERYTHEMA [None]
  - HYPERTHERMIA [None]
  - INFUSION RELATED REACTION [None]
  - LACRIMATION INCREASED [None]
  - MOANING [None]
  - NERVOUSNESS [None]
  - TACHYCARDIA [None]
  - TACHYPNOEA [None]
